FAERS Safety Report 8450174-0 (Version None)
Quarter: 2012Q2

REPORT INFORMATION
  Report Type: 
  Country: None (occurrence: None)
  Receive Date: 20120620
  Receipt Date: 20120612
  Transmission Date: 20120825
  Serious: Yes (Death)
  Sender: FDA-Public Use
  Company Number: US-CELGENEUS-163-21880-12030105

PATIENT
  Sex: Male

DRUGS (4)
  1. REVLIMID [Suspect]
     Dosage: 10 MILLIGRAM
     Route: 048
     Dates: start: 20111107, end: 20120109
  2. SOTALOL HCL [Concomitant]
     Dosage: 80 MILLIGRAM
     Route: 048
  3. REVLIMID [Suspect]
     Indication: DISEASE PROGRESSION
  4. AMLODIPINE [Concomitant]
     Dosage: 2.5 MILLIGRAM
     Route: 048

REACTIONS (3)
  - MYELODYSPLASTIC SYNDROME [None]
  - CACHEXIA [None]
  - BONE MARROW FAILURE [None]
